FAERS Safety Report 15400631 (Version 1)
Quarter: 2018Q3

REPORT INFORMATION
  Report Type: Spontaneous
  Country: US (occurrence: US)
  Receive Date: 20180919
  Receipt Date: 20180919
  Transmission Date: 20181010
  Serious: No
  Sender: FDA-Public Use
  Company Number: US-MALLINCKRODT-T201704451

PATIENT
  Sex: Female

DRUGS (1)
  1. PAMELOR [Suspect]
     Active Substance: NORTRIPTYLINE HYDROCHLORIDE
     Indication: HEREDITARY SPASTIC PARAPLEGIA
     Dosage: 25 MG, TWICE DAILY
     Route: 065

REACTIONS (1)
  - Off label use [Unknown]
